FAERS Safety Report 18986157 (Version 2)
Quarter: 2021Q1

REPORT INFORMATION
  Report Type: Spontaneous
  Country: US (occurrence: US)
  Receive Date: 20210309
  Receipt Date: 20210330
  Transmission Date: 20210420
  Serious: No
  Sender: FDA-Public Use
  Company Number: US-BEIGENE USA INC-BGN-2021-000604

PATIENT

DRUGS (1)
  1. BRUKINSA [Suspect]
     Active Substance: ZANUBRUTINIB
     Indication: CHRONIC LYMPHOCYTIC LEUKAEMIA
     Dosage: 1 DOSAGE FORM ROUGHLY 12 HOURS APART
     Route: 048
     Dates: start: 202102

REACTIONS (7)
  - Off label use [Unknown]
  - Haematoma [Unknown]
  - Ecchymosis [Unknown]
  - Oral contusion [Unknown]
  - Product label confusion [Unknown]
  - White blood cell count decreased [Unknown]
  - Accidental underdose [Unknown]

NARRATIVE: CASE EVENT DATE: 202102
